FAERS Safety Report 16767721 (Version 2)
Quarter: 2020Q1

REPORT INFORMATION
  Report Type: Report from Study
  Country: CA (occurrence: CA)
  Receive Date: 20190903
  Receipt Date: 20200207
  Transmission Date: 20200409
  Serious: Yes (Death, Other)
  Sender: FDA-Public Use
  Company Number: CA-PFIZER INC-2019373718

PATIENT
  Age: 66 Year
  Sex: Female
  Weight: 51 kg

DRUGS (21)
  1. OMEGA 3 [DOCOSAHEXAENOIC ACID;EICOSAPENTAENOIC ACID] [Concomitant]
     Active Substance: DOCONEXENT\ICOSAPENT
     Dosage: UNK
  2. VITAMIN D3 [Concomitant]
     Active Substance: CHOLECALCIFEROL
     Dosage: UNK
  3. ASPERGILLUS NIGER VAR NIGER [Concomitant]
     Active Substance: ASPERGILLUS NIGER VAR. NIGER
     Dosage: UNK
  4. BIOTIN [Concomitant]
     Active Substance: BIOTIN
     Dosage: UNK
  5. COQ10 COMPLEX [Concomitant]
  6. ZOLEDRONIC ACID [Suspect]
     Active Substance: ZOLEDRONIC ACID
     Dosage: UNK
  7. VITAMIN B12 [Concomitant]
     Active Substance: CYANOCOBALAMIN
     Dosage: UNK
  8. EGCG [Concomitant]
     Active Substance: EPIGALLOCATECHIN GALLATE
     Dosage: UNK
  9. RESVERATROL [Concomitant]
     Active Substance: DIETARY SUPPLEMENT\RESVERATROL
     Dosage: UNK
  10. QUERCETIN [Concomitant]
     Active Substance: QUERCETIN
     Dosage: UNK
  11. MUCOKEHL D5 [Concomitant]
  12. CURCUMIN [Concomitant]
     Active Substance: CURCUMIN
     Dosage: UNK
  13. FOLIC ACID. [Concomitant]
     Active Substance: FOLIC ACID
     Dosage: UNK
  14. NUX VOMICA [STRYCHNOS NUX-VOMICA] [Concomitant]
     Dosage: UNK
  15. OLIVE LEAF EXTRACT [Concomitant]
     Dosage: UNK
  16. SELENOMETHIONINE. [Concomitant]
     Active Substance: SELENOMETHIONINE
     Dosage: UNK
  17. ASHWAGANDHA [Concomitant]
     Active Substance: HERBALS
     Dosage: UNK
  18. MILK THISTLE [Concomitant]
     Active Substance: DIETARY SUPPLEMENT\HERBALS\MILK THISTLE
     Dosage: UNK
  19. TURKEY TAIL MUSHROOM [Concomitant]
     Dosage: UNK
  20. AVASTIN [Suspect]
     Active Substance: BEVACIZUMAB
     Indication: LUNG ADENOCARCINOMA
     Dosage: 679.5 MG, EVERY 3 WEEKS
     Route: 042
     Dates: start: 2015, end: 2015
  21. CALCIUM [Concomitant]
     Active Substance: CALCIUM

REACTIONS (6)
  - Herpes zoster [Recovering/Resolving]
  - Weight increased [Unknown]
  - Death [Fatal]
  - Musculoskeletal stiffness [Not Recovered/Not Resolved]
  - Myalgia [Not Recovered/Not Resolved]
  - Ageusia [Not Recovered/Not Resolved]

NARRATIVE: CASE EVENT DATE: 2015
